FAERS Safety Report 10388143 (Version 4)
Quarter: 2015Q2

REPORT INFORMATION
  Report Type: Report from Study
  Country: FR (occurrence: FR)
  Receive Date: 20140815
  Receipt Date: 20150406
  Transmission Date: 20150821
  Serious: Yes (Other)
  Sender: FDA-Public Use
  Company Number: FR-ABBVIE-14P-056-1269906-00

PATIENT
  Age: 68 Year
  Sex: Female
  Weight: 88 kg

DRUGS (5)
  1. AMLOR [Concomitant]
     Active Substance: AMLODIPINE BESYLATE
     Indication: HYPERTENSION
     Route: 048
     Dates: start: 201307
  2. UVEDOSE [Concomitant]
     Active Substance: CHOLECALCIFEROL
     Indication: HYPERPARATHYROIDISM PRIMARY
     Route: 048
     Dates: start: 20140701, end: 20140801
  3. HUMIRA [Suspect]
     Active Substance: ADALIMUMAB
     Indication: UVEITIS
     Route: 058
     Dates: start: 20140611
  4. ACTONEL [Concomitant]
     Active Substance: RISEDRONATE SODIUM
     Indication: VITAMIN SUPPLEMENTATION
     Route: 048
     Dates: start: 20140402
  5. UVEDOSE [Concomitant]
     Active Substance: CHOLECALCIFEROL
     Dosage: 1 VIAL PER MONTH
     Route: 048
     Dates: start: 20140802

REACTIONS (1)
  - Retinal vasculitis [Recovered/Resolved]

NARRATIVE: CASE EVENT DATE: 20140805
